FAERS Safety Report 10444174 (Version 1)
Quarter: 2014Q3

REPORT INFORMATION
  Report Type: Spontaneous
  Country: BR (occurrence: BR)
  Receive Date: 20140910
  Receipt Date: 20140910
  Transmission Date: 20150326
  Serious: Yes (Hospitalization)
  Sender: FDA-Public Use
  Company Number: BR-ABBVIE-14K-020-1280865-00

PATIENT
  Age: 77 Year
  Sex: Female
  Weight: 67 kg

DRUGS (9)
  1. CORUS [Concomitant]
     Active Substance: LOSARTAN POTASSIUM
     Indication: CARDIAC DISORDER
     Route: 048
     Dates: start: 2004
  2. TRADJENTA [Concomitant]
     Active Substance: LINAGLIPTIN
     Indication: DIABETES MELLITUS
     Route: 048
     Dates: start: 2012
  3. CONCOR [Concomitant]
     Active Substance: BISOPROLOL FUMARATE
     Indication: CARDIAC DISORDER
     Route: 048
     Dates: start: 2004
  4. RIVOTRIL [Concomitant]
     Active Substance: CLONAZEPAM
     Indication: DEPRESSION
     Route: 048
     Dates: start: 2002
  5. PURAN [Concomitant]
     Active Substance: LEVOTHYROXINE SODIUM
     Indication: THYROID DISORDER
     Route: 048
     Dates: start: 2004
  6. HUMIRA [Suspect]
     Active Substance: ADALIMUMAB
     Indication: RHEUMATOID ARTHRITIS
     Route: 058
     Dates: start: 20140401
  7. NIMESULIDE [Concomitant]
     Active Substance: NIMESULIDE
     Indication: DIURETIC THERAPY
     Dosage: IN THE MORNING
     Route: 048
     Dates: start: 2004
  8. CITALOPRAM [Concomitant]
     Active Substance: CITALOPRAM HYDROBROMIDE
     Indication: DEPRESSION
     Route: 048
     Dates: start: 2002
  9. INSULIN [Concomitant]
     Active Substance: INSULIN NOS
     Indication: DIABETES MELLITUS
     Dosage: 1 INJECTION IN THE MORNING AND 1 INJECTION AT NIGHT
     Route: 050
     Dates: start: 2011

REACTIONS (5)
  - Renal disorder [Recovering/Resolving]
  - Pulmonary embolism [Recovered/Resolved]
  - Urine output decreased [Recovering/Resolving]
  - Dyspnoea [Recovering/Resolving]
  - Joint effusion [Unknown]

NARRATIVE: CASE EVENT DATE: 201405
